FAERS Safety Report 12122302 (Version 1)
Quarter: 2016Q1

REPORT INFORMATION
  Report Type: Report from Study
  Country: AR (occurrence: AR)
  Receive Date: 20160226
  Receipt Date: 20160226
  Transmission Date: 20160526
  Serious: Yes (Other)
  Sender: FDA-Public Use
  Company Number: PHHY2016AR024801

PATIENT
  Sex: Female

DRUGS (1)
  1. DIOVAN [Suspect]
     Active Substance: VALSARTAN
     Indication: HYPERTENSION
     Dosage: 320 OT, UNK
     Route: 065

REACTIONS (7)
  - Dyslipidaemia [Unknown]
  - Injury [Recovering/Resolving]
  - Syncope [Recovering/Resolving]
  - Regressive behaviour [Recovering/Resolving]
  - Diabetes mellitus [Unknown]
  - Wrong technique in product usage process [Unknown]
  - Depression [Recovering/Resolving]
